FAERS Safety Report 9877509 (Version 2)
Quarter: 2014Q1

REPORT INFORMATION
  Report Type: Spontaneous
  Country: US (occurrence: US)
  Receive Date: 20140206
  Receipt Date: 20140206
  Transmission Date: 20141002
  Serious: Yes (Other)
  Sender: FDA-Public Use
  Company Number: US-SA-2013SA111106

PATIENT
  Age: 84 Year
  Sex: Male

DRUGS (11)
  1. ELIGARD [Suspect]
     Route: 065
     Dates: start: 20130724
  2. ASPIRIN [Concomitant]
  3. FUROSEMIDE [Concomitant]
  4. SYNTHROID [Concomitant]
  5. METOPROLOL [Concomitant]
     Dosage: DOSE: 25
  6. SIMVASTATIN [Concomitant]
  7. LISINOPRIL [Concomitant]
  8. COUMADIN [Concomitant]
  9. POTASSIUM CHLORIDE [Concomitant]
  10. CALCIUM [Concomitant]
  11. VITAMIN D [Concomitant]

REACTIONS (3)
  - Loss of consciousness [Unknown]
  - Chills [Unknown]
  - Vertigo [Unknown]
